FAERS Safety Report 8849479 (Version 1)
Quarter: 2012Q4

REPORT INFORMATION
  Report Type: 
  Country: BR (occurrence: BR)
  Receive Date: 20121019
  Receipt Date: 20121019
  Transmission Date: 20130627
  Serious: Yes (Hospitalization)
  Sender: FDA-Public Use
  Company Number: PHHY2012BR091458

PATIENT
  Age: 56 Year
  Sex: Female

DRUGS (4)
  1. AMINOPHYLLINE [Suspect]
     Indication: BRONCHITIS
     Dosage: 1 DF, TID
     Route: 048
  2. AMINOPHYLLINE [Suspect]
     Dosage: 200 mg, TID
     Route: 048
  3. FORASEQ [Suspect]
     Dosage: 1 DF, TID
     Route: 048
  4. BEROTEC [Concomitant]

REACTIONS (4)
  - Pneumonia [Recovered/Resolved]
  - Bronchitis [Recovered/Resolved]
  - Dyspnoea [Not Recovered/Not Resolved]
  - General physical health deterioration [None]
